FAERS Safety Report 7421649-8 (Version None)
Quarter: 2011Q2

REPORT INFORMATION
  Report Type: 
  Country: None (occurrence: None)
  Receive Date: 20110418
  Receipt Date: 20110412
  Transmission Date: 20111010
  Serious: Yes (Other)
  Sender: FDA-Public Use
  Company Number: US-PFIZER INC-2011039901

PATIENT
  Sex: Male
  Weight: 12.4 kg

DRUGS (3)
  1. XYNTHA [Suspect]
     Indication: FACTOR VIII DEFICIENCY
     Dosage: 7 DOSES OF XYNTHA PRIOR TO INHIBITOR DEVELOPMENT AT UNKNOWN DOSE
     Route: 042
  2. XYNTHA [Suspect]
     Dosage: 1150 IU, 1X/DAY
     Route: 042
     Dates: start: 20110210, end: 20110210
  3. KOGENATE [Suspect]
     Indication: FACTOR VIII DEFICIENCY
     Dosage: UNK
     Dates: start: 20110212

REACTIONS (5)
  - UNRESPONSIVE TO STIMULI [None]
  - FACTOR XIII INHIBITION [None]
  - RASH GENERALISED [None]
  - FACE OEDEMA [None]
  - URTICARIA [None]
